FAERS Safety Report 4482311-7 (Version None)
Quarter: 2004Q4

REPORT INFORMATION
  Report Type: 
  Country: None (occurrence: None)
  Receive Date: 20041022
  Receipt Date: 20041013
  Transmission Date: 20050328
  Serious: Yes (Death)
  Sender: FDA-Public Use
  Company Number: BR-MERCK-0410BRA00330

PATIENT
  Sex: Male

DRUGS (1)
  1. VIOXX [Suspect]
     Indication: EYE PAIN
     Route: 048
     Dates: start: 20040727, end: 20041007

REACTIONS (4)
  - DEATH [None]
  - FEELING ABNORMAL [None]
  - SYNCOPE [None]
  - VOMITING [None]
